FAERS Safety Report 25967343 (Version 1)
Quarter: 2025Q4

REPORT INFORMATION
  Report Type: Spontaneous
  Country: EU (occurrence: EU)
  Receive Date: 20251028
  Receipt Date: 20251028
  Transmission Date: 20260118
  Serious: Yes (Other)
  Sender: MERCK SHARP & DOHME LLC
  Company Number: EU-009507513-2343220

PATIENT
  Age: 53 Year
  Sex: Female

DRUGS (6)
  1. PEMBROLIZUMAB [Suspect]
     Active Substance: PEMBROLIZUMAB
     Indication: Triple negative breast cancer
     Dates: start: 2024
  2. OLAPARIB [Suspect]
     Active Substance: OLAPARIB
     Indication: Triple negative breast cancer
     Route: 048
  3. PACLITAXEL [Concomitant]
     Active Substance: PACLITAXEL
     Indication: Triple negative breast cancer
     Dosage: TIME INTERVAL: CYCLICAL: FOUR CYCLES
     Route: 042
     Dates: start: 2024
  4. PACLITAXEL [Concomitant]
     Active Substance: PACLITAXEL
     Indication: Triple negative breast cancer
     Dosage: CONTINUED CYCLES 5-8
     Dates: start: 2024
  5. CARBOPLATIN [Concomitant]
     Active Substance: CARBOPLATIN
     Indication: Triple negative breast cancer
     Dosage: TIME INTERVAL: CYCLICAL: 4 CYCLES
     Route: 042
     Dates: start: 2024
  6. CARBOPLATIN [Concomitant]
     Active Substance: CARBOPLATIN
     Indication: Triple negative breast cancer
     Dosage: CYCLE 5 TO 8
     Dates: start: 2024

REACTIONS (4)
  - Hepatotoxicity [Unknown]
  - Skin necrosis [Unknown]
  - Gastrointestinal toxicity [Unknown]
  - Skin necrosis [Unknown]
